FAERS Safety Report 15320950 (Version 3)
Quarter: 2018Q4

REPORT INFORMATION
  Report Type: Spontaneous
  Country: US (occurrence: US)
  Receive Date: 20180827
  Receipt Date: 20181123
  Transmission Date: 20190204
  Serious: Yes (Death, Hospitalization, Congenital Anomaly)
  Sender: FDA-Public Use
  Company Number: US-BIOGEN-2018BI00623921

PATIENT

DRUGS (1)
  1. TYSABRI [Suspect]
     Active Substance: NATALIZUMAB
     Indication: PATERNAL EXPOSURE TIMING UNSPECIFIED
     Dosage: INFUSED OVER 1 HOUR
     Route: 064

REACTIONS (4)
  - Paternal exposure before pregnancy [Recovered/Resolved]
  - Renal aplasia [Fatal]
  - Pulmonary hypoplasia [Fatal]
  - Bladder agenesis [Fatal]

NARRATIVE: CASE EVENT DATE: 20160505
